FAERS Safety Report 21842028 (Version 1)
Quarter: 2023Q1

REPORT INFORMATION
  Report Type: Spontaneous
  Country: AT (occurrence: AT)
  Receive Date: 20230110
  Receipt Date: 20230110
  Transmission Date: 20230417
  Serious: Yes (Hospitalization)
  Sender: FDA-Public Use
  Company Number: AT-MYLANLABS-2022M1140941

PATIENT
  Age: 20 Year
  Sex: Female

DRUGS (15)
  1. ARIPIPRAZOLE [Suspect]
     Active Substance: ARIPIPRAZOLE
     Indication: Borderline personality disorder
     Dosage: 5 MILLIGRAM
     Route: 065
  2. CLOMIPRAMINE [Suspect]
     Active Substance: CLOMIPRAMINE
     Indication: Borderline personality disorder
     Dosage: UNK, QD, CLOMIPRAMINE (UP TO 225 MG P.O.Q.D.)
     Route: 048
  3. LITHIUM [Suspect]
     Active Substance: LITHIUM
     Indication: Borderline personality disorder
     Dosage: 225 MILLIGRAM
     Route: 065
  4. TOPIRAMATE [Suspect]
     Active Substance: TOPIRAMATE
     Indication: Borderline personality disorder
     Dosage: 50 MILLIGRAM
     Route: 065
  5. ESKETAMINE [Suspect]
     Active Substance: ESKETAMINE
     Indication: Borderline personality disorder
     Dosage: UNK,THE PATIENT RECEIVED FIVE IV INFUSIONS OF ESKETAMINE OVER 40-60 MIN DURING A TIME PERIOD OF TWO
     Route: 042
  6. ESCITALOPRAM [Suspect]
     Active Substance: ESCITALOPRAM OXALATE
     Indication: Borderline personality disorder
     Dosage: UNK
     Route: 065
  7. ESCITALOPRAM [Suspect]
     Active Substance: ESCITALOPRAM OXALATE
     Dosage: 30 MILLIGRAM, QD, HIGH DOSE OF ESCITALOPRAM 30MG DAILY
     Route: 048
  8. LORAZEPAM [Suspect]
     Active Substance: LORAZEPAM
     Indication: Borderline personality disorder
     Dosage: UNK
     Route: 065
  9. LORAZEPAM [Suspect]
     Active Substance: LORAZEPAM
     Dosage: 2.5 MILLIGRAM
     Route: 065
  10. CLONAZEPAM [Suspect]
     Active Substance: CLONAZEPAM
     Indication: Borderline personality disorder
     Dosage: UNK
     Route: 065
  11. CLONAZEPAM [Suspect]
     Active Substance: CLONAZEPAM
     Dosage: 0.5 MILLIGRAM
     Route: 065
  12. BUPROPION [Concomitant]
     Active Substance: BUPROPION
     Indication: Borderline personality disorder
     Dosage: 150 MILLIGRAM, QD, EXTENDED RELEASE 150 MG P.O.Q.D.
     Route: 048
  13. TRAZODONE [Concomitant]
     Active Substance: TRAZODONE HYDROCHLORIDE
     Indication: Borderline personality disorder
     Dosage: 150 MILLIGRAM, QD, TRAZODONE (RETARD PREPARATION) 150 MG P.O.Q.D.
     Route: 048
  14. ZOLPIDEM [Concomitant]
     Active Substance: ZOLPIDEM TARTRATE
     Indication: Hallucinations, mixed
     Dosage: 10 MILLIGRAM, ZOLPIDEM 10 MG WAS ADMINISTERED ONLY ONCE
     Route: 065
  15. DULOXETINE [Concomitant]
     Active Substance: DULOXETINE
     Indication: Borderline personality disorder
     Dosage: UNK, DULOXETINE 60-180 MG
     Route: 065

REACTIONS (3)
  - Tremor [Unknown]
  - Agitation [Unknown]
  - Vertigo [Unknown]
